FAERS Safety Report 12923621 (Version 1)
Quarter: 2016Q4

REPORT INFORMATION
  Report Type: Spontaneous
  Country: FR (occurrence: FR)
  Receive Date: 20161108
  Receipt Date: 20161108
  Transmission Date: 20170207
  Serious: Yes (Death, Hospitalization)
  Sender: FDA-Public Use
  Company Number: FR-JNJFOC-20161103615

PATIENT
  Age: 73 Year
  Sex: Female
  Weight: 48.5 kg

DRUGS (8)
  1. DUROGESIC [Suspect]
     Active Substance: FENTANYL
     Indication: PAIN
     Dosage: 12 UG/HR CUT IN HALF
     Route: 062
     Dates: start: 20160914, end: 20160921
  2. NEO-CODION /01425101/ [Suspect]
     Active Substance: CODEINE\GRINDELIA HIRSUTULA WHOLE\SULFOGAIACOL
     Indication: PRODUCT USED FOR UNKNOWN INDICATION
     Route: 065
     Dates: start: 201608, end: 20160908
  3. SCOBUREN [Suspect]
     Active Substance: BUTYLSCOPOLAMINE
     Indication: PALLIATIVE CARE
     Route: 042
     Dates: start: 20160904, end: 20160925
  4. GILOTRIF [Suspect]
     Active Substance: AFATINIB
     Indication: LUNG ADENOCARCINOMA STAGE IV
     Route: 048
     Dates: start: 20160715, end: 20160908
  5. SCOBUREN [Suspect]
     Active Substance: BUTYLSCOPOLAMINE
     Indication: PALLIATIVE CARE
     Route: 042
  6. LASILIX [Concomitant]
     Active Substance: FUROSEMIDE
     Indication: FLUID RETENTION
     Route: 065
     Dates: end: 20160920
  7. CODOLIPRANE [Suspect]
     Active Substance: ACETAMINOPHEN\CODEINE PHOSPHATE
     Indication: PRODUCT USED FOR UNKNOWN INDICATION
     Route: 048
     Dates: start: 201608, end: 20160908
  8. OXYNORM [Suspect]
     Active Substance: OXYCODONE HYDROCHLORIDE
     Indication: DIARRHOEA
     Route: 065
     Dates: start: 20160914, end: 20160925

REACTIONS (4)
  - Wrong technique in product usage process [Unknown]
  - Off label use [Unknown]
  - Intestinal obstruction [Fatal]
  - Abdominal pain [Fatal]

NARRATIVE: CASE EVENT DATE: 20160914
